FAERS Safety Report 9534991 (Version 5)
Quarter: 2014Q1

REPORT INFORMATION
  Report Type: Spontaneous
  Country: US (occurrence: US)
  Receive Date: 20130918
  Receipt Date: 20140226
  Transmission Date: 20141002
  Serious: Yes (Hospitalization, Other)
  Sender: FDA-Public Use
  Company Number: US-009507513-1309USA005403

PATIENT
  Sex: Female

DRUGS (16)
  1. FOSAMAX [Suspect]
     Indication: OSTEOPOROSIS
     Dosage: 70 MG, QW
     Route: 048
  2. FOSAMAX [Suspect]
     Dosage: UNK
     Route: 048
  3. ALENDRONATE SODIUM [Suspect]
     Indication: OSTEOPOROSIS
     Dosage: 70 MG, QW
     Route: 048
     Dates: start: 20080627
  4. VITAMINS (UNSPECIFIED) [Concomitant]
     Dosage: QD
     Dates: start: 1974
  5. SYNTHROID [Concomitant]
     Indication: HYPOTHYROIDISM
     Dosage: 100 MICROGRAM, QD
     Dates: start: 1989
  6. DESLORATADINE [Concomitant]
     Indication: ASTHMA
     Dosage: UNK
     Dates: start: 1984
  7. ADVAIR [Concomitant]
     Indication: ASTHMA
     Dosage: 250/50MG, BID
     Dates: start: 1984
  8. ACETAMINOPHEN (+) HYDROCODONE BITARTRATE [Concomitant]
     Indication: PAIN
     Dosage: UNK
     Dates: start: 19990701, end: 20120517
  9. LEVOTHYROXINE SODIUM [Concomitant]
     Indication: HYPOTHYROIDISM
     Dosage: UNK
     Dates: start: 20040901, end: 20080609
  10. PROMETHAZINE [Concomitant]
     Indication: HYPERSENSITIVITY
     Dosage: UNK
     Dates: start: 20070430, end: 20070511
  11. CLARINEX (DESLORATADINE) [Concomitant]
     Indication: HYPERSENSITIVITY
     Dosage: 5 MG, QD
     Dates: start: 20050701, end: 20111103
  12. PREDNISONE [Concomitant]
     Indication: HYPERSENSITIVITY
     Dosage: UNK
     Dates: start: 19990406, end: 20111117
  13. MEPREDNISONE [Concomitant]
     Indication: ASTHMA
     Dosage: UNK
     Dates: start: 19990122, end: 20101107
  14. CLINDAMYCIN [Concomitant]
     Indication: VAGINAL INFECTION
     Dosage: UNK
     Dates: start: 19990701, end: 20121210
  15. ACCOLATE [Concomitant]
     Indication: ASTHMA
     Dosage: UNK
     Dates: start: 20041116, end: 20080319
  16. NASONEX [Concomitant]
     Indication: HYPERSENSITIVITY
     Dosage: UNK
     Dates: start: 20000324

REACTIONS (44)
  - Femoral neck fracture [Unknown]
  - Hip arthroplasty [Unknown]
  - Cardiac pacemaker insertion [Unknown]
  - Cardiac pacemaker replacement [Unknown]
  - Adverse drug reaction [Unknown]
  - Unevaluable event [Unknown]
  - Hearing impaired [Unknown]
  - Syncope [Unknown]
  - Pneumonia [Unknown]
  - Low turnover osteopathy [Unknown]
  - Hypertension [Unknown]
  - Infection [Unknown]
  - Intraocular pressure increased [Unknown]
  - Fungal infection [Unknown]
  - Bacterial infection [Unknown]
  - Rhinorrhoea [Unknown]
  - Cough [Unknown]
  - Bacterial infection [Unknown]
  - Bacterial infection [Unknown]
  - Intraocular pressure increased [Unknown]
  - Glaucoma [Unknown]
  - Pain [Unknown]
  - Infection [Unknown]
  - Eye inflammation [Unknown]
  - Bacterial infection [Unknown]
  - Chronic obstructive pulmonary disease [Not Recovered/Not Resolved]
  - Fall [Unknown]
  - Dementia [Unknown]
  - Confusion postoperative [Recovering/Resolving]
  - Memory impairment [Unknown]
  - Osteoarthritis [Unknown]
  - Hand fracture [Unknown]
  - Cyst [Unknown]
  - Radius fracture [Unknown]
  - Osteoarthritis [Unknown]
  - Bone metabolism disorder [Unknown]
  - Pain [Unknown]
  - Vaginal infection [Unknown]
  - Osteopenia [Unknown]
  - Hypertension [Unknown]
  - Benign bone neoplasm [Unknown]
  - Conjunctivitis [Unknown]
  - Osteoarthritis [Unknown]
  - Urticaria [Unknown]
